FAERS Safety Report 8470196-3 (Version None)
Quarter: 2012Q2

REPORT INFORMATION
  Report Type: 
  Country: None (occurrence: None)
  Receive Date: 20120621
  Receipt Date: 20120621
  Transmission Date: 20120825
  Serious: Yes (Hospitalization)
  Sender: FDA-Public Use
  Company Number: None

PATIENT
  Sex: Female

DRUGS (1)
  1. LEVOTHROID [Suspect]
     Indication: THYROIDECTOMY
     Dosage: 125 MCG ONE A DAY PO
     Route: 048
     Dates: start: 20120401, end: 20120620

REACTIONS (10)
  - HEART RATE INCREASED [None]
  - DIARRHOEA [None]
  - NERVOUSNESS [None]
  - MENSTRUAL DISORDER [None]
  - INSOMNIA [None]
  - HYPERHIDROSIS [None]
  - ANXIETY [None]
  - TREMOR [None]
  - IRRITABILITY [None]
  - DYSPNOEA [None]
